FAERS Safety Report 6116561-0 (Version None)
Quarter: 2009Q1

REPORT INFORMATION
  Report Type: 
  Country: None (occurrence: None)
  Receive Date: 20090314
  Receipt Date: 20081218
  Transmission Date: 20090719
  Serious: No
  Sender: FDA-Public Use
  Company Number: US-ABBOTT-08P-163-0493763-00

PATIENT
  Sex: Female
  Weight: 94.432 kg

DRUGS (3)
  1. HUMIRA [Suspect]
     Indication: COLITIS ULCERATIVE
     Dosage: LOADING DOSE
     Dates: start: 20080710, end: 20080710
  2. HUMIRA [Suspect]
     Indication: FISTULA
     Dates: start: 20080724, end: 20080724
  3. HUMIRA [Suspect]
     Indication: PROPHYLAXIS
     Dates: start: 20080807

REACTIONS (4)
  - INJECTION SITE ERYTHEMA [None]
  - INJECTION SITE INDURATION [None]
  - INJECTION SITE PRURITUS [None]
  - INJECTION SITE REACTION [None]
